FAERS Safety Report 9743304 (Version 2)
Quarter: 2013Q4

REPORT INFORMATION
  Report Type: Spontaneous
  Country: US (occurrence: US)
  Receive Date: 20131210
  Receipt Date: 20131210
  Transmission Date: 20140711
  Serious: No
  Sender: FDA-Public Use
  Company Number: US-GILEAD-2009-0024933

PATIENT
  Sex: Female

DRUGS (11)
  1. LETAIRIS [Suspect]
     Indication: PULMONARY ARTERIAL HYPERTENSION
     Route: 048
     Dates: start: 20090805
  2. ALBUTEROL [Concomitant]
  3. LANTUS [Concomitant]
  4. PRILOSEC [Concomitant]
  5. COLACE [Concomitant]
  6. SPIRIVA [Concomitant]
  7. TYLENOL [Concomitant]
  8. PRESSERVATION [Concomitant]
  9. CALTRATE W VITAMIN D [Concomitant]
  10. FOLIC ACID [Concomitant]
  11. MULTIVITAMIN [Concomitant]

REACTIONS (1)
  - Fatigue [Unknown]
